FAERS Safety Report 22227655 (Version 1)
Quarter: 2023Q2

REPORT INFORMATION
  Report Type: Spontaneous
  Country: US (occurrence: US)
  Receive Date: 20230419
  Receipt Date: 20230419
  Transmission Date: 20230721
  Serious: Yes (Other)
  Sender: FDA-Public Use
  Company Number: US-BoehringerIngelheim-2023-BI-231730

PATIENT
  Sex: Female

DRUGS (1)
  1. JARDIANCE [Suspect]
     Active Substance: EMPAGLIFLOZIN
     Indication: Product used for unknown indication

REACTIONS (6)
  - Immunodeficiency [Unknown]
  - Cardiac sarcoidosis [Unknown]
  - Sarcoidosis [Unknown]
  - Coronary artery disease [Unknown]
  - Hypertension [Unknown]
  - Type 2 diabetes mellitus [Unknown]
